FAERS Safety Report 7478056-1 (Version None)
Quarter: 2011Q2

REPORT INFORMATION
  Report Type: 
  Country: None (occurrence: None)
  Receive Date: 20110511
  Receipt Date: 20110511
  Transmission Date: 20111010
  Serious: Yes (Hospitalization)
  Sender: FDA-Public Use
  Company Number: None

PATIENT
  Sex: Male
  Weight: 58.514 kg

DRUGS (1)
  1. AMBIEN [Suspect]
     Indication: INSOMNIA
     Dosage: 10MG IF NOT SLEEP @10PM PO 10MG REPEAT DOSE IF NOT SLEEP @ 4AM PO
     Route: 048
     Dates: start: 20101227, end: 20101229

REACTIONS (4)
  - FACIAL BONES FRACTURE [None]
  - SOMNAMBULISM [None]
  - DRUG EFFECT DECREASED [None]
  - FALL [None]
